FAERS Safety Report 5175718-6 (Version None)
Quarter: 2006Q4

REPORT INFORMATION
  Report Type: 
  Country: None (occurrence: None)
  Receive Date: 20061215
  Receipt Date: 20061209
  Transmission Date: 20070319
  Serious: Yes (Other)
  Sender: FDA-Public Use
  Company Number: US-BAYER-200614968BCC

PATIENT
  Age: 10 Year
  Sex: Female
  Weight: 39 kg

DRUGS (1)
  1. ALKA SELTZER PLUS EFFERVESCENT COLD [Suspect]
     Indication: NASOPHARYNGITIS
     Dosage: TOTAL DAILY DOSE: 500 MG  UNIT DOSE: 250 MG
     Route: 048
     Dates: start: 20061208

REACTIONS (3)
  - ASTHENIA [None]
  - LETHARGY [None]
  - SHUNT MALFUNCTION [None]
